FAERS Safety Report 8397617-9 (Version None)
Quarter: 2012Q2

REPORT INFORMATION
  Report Type: 
  Country: None (occurrence: None)
  Receive Date: 20120524
  Receipt Date: 20120510
  Transmission Date: 20120825
  Serious: Yes (Death, Hospitalization)
  Sender: FDA-Public Use
  Company Number: UTC-018110

PATIENT
  Age: 47 Year
  Sex: Female
  Weight: 50 kg

DRUGS (3)
  1. TYVASO [Suspect]
     Indication: PULMONARY HYPERTENSION
     Dosage: 18 TO 54 MICROGRAMS (4 IN 1 D), INHALATION
     Route: 055
     Dates: start: 20091023
  2. REVATIO [Concomitant]
  3. TRACLEER [Concomitant]

REACTIONS (5)
  - RESPIRATORY FAILURE [None]
  - PULMONARY HYPERTENSION [None]
  - SEPTIC SHOCK [None]
  - PNEUMONIA [None]
  - SCLERODERMA [None]
